FAERS Safety Report 6306766-8 (Version None)
Quarter: 2009Q3

REPORT INFORMATION
  Report Type: 
  Country: None (occurrence: None)
  Receive Date: 20090812
  Receipt Date: 20090730
  Transmission Date: 20100115
  Serious: Yes (Disabling)
  Sender: FDA-Public Use
  Company Number: JP-GENENTECH-287520

PATIENT
  Sex: Male
  Weight: 55.4 kg

DRUGS (12)
  1. AVASTIN [Suspect]
     Indication: COLORECTAL CANCER METASTATIC
     Dosage: 450 MG, Q3W
     Route: 041
     Dates: start: 20081007, end: 20090519
  2. IRINOTECAN HCL [Suspect]
     Indication: RECTAL CANCER
     Dosage: 160 MG, Q3W
     Route: 041
     Dates: start: 20081007, end: 20090519
  3. FLUOROURACIL [Suspect]
     Indication: RECTAL CANCER
     Dosage: 500 MG, Q3W
     Route: 040
     Dates: start: 20081007, end: 20090519
  4. CALCIUM LEVOFOLINATE [Suspect]
     Indication: RECTAL CANCER
     Dosage: 275 MG, UNK
     Route: 041
     Dates: start: 20081008, end: 20090519
  5. NATEGLINIDE [Concomitant]
     Indication: DRUG USE FOR UNKNOWN INDICATION
     Dosage: UNK
  6. ALOSENN (UNK INGREDIENTS) [Concomitant]
     Indication: DRUG USE FOR UNKNOWN INDICATION
     Dosage: UNK
  7. NAUZELIN [Concomitant]
     Indication: DRUG USE FOR UNKNOWN INDICATION
     Dosage: UNK
  8. FERROMIA [Concomitant]
     Indication: DRUG USE FOR UNKNOWN INDICATION
     Dosage: UNK
  9. ZANTAC [Concomitant]
     Indication: DRUG USE FOR UNKNOWN INDICATION
     Dosage: UNK
  10. MAGNESIUM OXIDE [Concomitant]
     Indication: DRUG USE FOR UNKNOWN INDICATION
     Dosage: UNK
  11. OXYCONTIN [Concomitant]
     Indication: DRUG USE FOR UNKNOWN INDICATION
     Dosage: UNK
  12. ORGOTEIN [Concomitant]
     Indication: DRUG USE FOR UNKNOWN INDICATION
     Dosage: UNK

REACTIONS (3)
  - BLOOD PRESSURE INCREASED [None]
  - PROTEINURIA [None]
  - RENAL IMPAIRMENT [None]
